FAERS Safety Report 23626690 (Version 1)
Quarter: 2024Q1

REPORT INFORMATION
  Report Type: Spontaneous
  Country: US (occurrence: None)
  Receive Date: 20240312
  Receipt Date: 20240312
  Transmission Date: 20240410
  Serious: No
  Sender: FDA-Public Use
  Company Number: None

PATIENT
  Age: 43 Year
  Sex: Male
  Weight: 72.9 kg

DRUGS (7)
  1. MAVYRET [Suspect]
     Active Substance: GLECAPREVIR\PIBRENTASVIR
     Indication: Hepatitis C
     Dosage: FREQUENCY : DAILY;?
     Route: 048
     Dates: start: 20240221
  2. VITAMIN D [Concomitant]
     Active Substance: VITAMIN D NOS
  3. MAALOX ANTACID [Concomitant]
     Active Substance: ALUMINUM HYDROXIDE\DIMETHICONE\MAGNESIUM HYDROXIDE
  4. BUPRENORPHINE [Concomitant]
     Active Substance: BUPRENORPHINE
  5. LISINOPRIL [Concomitant]
     Active Substance: LISINOPRIL
  6. GABAPENTIN [Concomitant]
     Active Substance: GABAPENTIN
  7. MINERALS\VITAMINS [Concomitant]
     Active Substance: MINERALS\VITAMINS

REACTIONS (5)
  - Nausea [None]
  - Hunger [None]
  - Fatigue [None]
  - Weight decreased [None]
  - Retching [None]

NARRATIVE: CASE EVENT DATE: 20240312
